FAERS Safety Report 11642227 (Version 2)
Quarter: 2015Q4

REPORT INFORMATION
  Report Type: Spontaneous
  Country: US (occurrence: US)
  Receive Date: 20151019
  Receipt Date: 20151211
  Transmission Date: 20160304
  Serious: No
  Sender: FDA-Public Use
  Company Number: US-PFIZER INC-2015247060

PATIENT
  Age: 73 Year
  Sex: Male

DRUGS (7)
  1. METFORMIN HYDROCHLORIDE. [Concomitant]
     Active Substance: METFORMIN HYDROCHLORIDE
     Dosage: 500 MG, UNK
     Dates: start: 20120115
  2. LYRICA [Suspect]
     Active Substance: PREGABALIN
     Dosage: 75 MG, 1X/DAY
     Dates: start: 20150715
  3. CARBILEVO [Concomitant]
     Dosage: UNK`(2.5 - 100MG)
     Dates: start: 20141115
  4. MEMANTINE. [Concomitant]
     Active Substance: MEMANTINE
     Dosage: UNK (10, 6 H)
     Dates: start: 20141115
  5. LISINOPRIL. [Concomitant]
     Active Substance: LISINOPRIL
     Dosage: 40 MG, UNK
     Dates: start: 20120115
  6. LYRICA [Suspect]
     Active Substance: PREGABALIN
     Indication: DIABETIC NEUROPATHY
     Dosage: 50 MG, 1X/DAY
     Dates: start: 20150701
  7. HYDROCHLOROTHIAZIDE. [Concomitant]
     Active Substance: HYDROCHLOROTHIAZIDE
     Dosage: 25 MG, UNK
     Dates: start: 20120115

REACTIONS (6)
  - Limb discomfort [Unknown]
  - Insomnia [Unknown]
  - Paraesthesia [Unknown]
  - Hypoaesthesia [Unknown]
  - Pain [Unknown]
  - Burning sensation [Unknown]
